FAERS Safety Report 8908226 (Version 1)
Quarter: 2012Q4

REPORT INFORMATION
  Report Type: 
  Country: GR (occurrence: GR)
  Receive Date: 20121114
  Receipt Date: 20121114
  Transmission Date: 20130627
  Serious: Yes (Life-Threatening)
  Sender: FDA-Public Use
  Company Number: PHHY2012GR104530

PATIENT
  Sex: Male

DRUGS (3)
  1. EXELON [Suspect]
     Dosage: 1.5 mg, TID
     Route: 048
  2. EXELON [Suspect]
     Dosage: UNK UKN, UNK
     Route: 048
  3. OLANZAPINE [Concomitant]

REACTIONS (2)
  - Ketoacidosis [Unknown]
  - Vomiting [Recovering/Resolving]
